FAERS Safety Report 4370776-0 (Version None)
Quarter: 2004Q2

REPORT INFORMATION
  Report Type: 
  Country: None (occurrence: None)
  Receive Date: 20040601
  Receipt Date: 20040517
  Transmission Date: 20050107
  Serious: No
  Sender: FDA-Public Use
  Company Number: 2004SE02300

PATIENT
  Age: 79 Year
  Sex: Male
  Weight: 63 kg

DRUGS (4)
  1. ZOLADEX [Suspect]
     Indication: PROSTATE CANCER
  2. SULAR [Concomitant]
  3. TENORMIN [Concomitant]
  4. LASIX [Concomitant]

REACTIONS (1)
  - NIGHT SWEATS [None]
